FAERS Safety Report 8013702-5 (Version None)
Quarter: 2011Q4

REPORT INFORMATION
  Report Type: 
  Country: None (occurrence: None)
  Receive Date: 20111229
  Receipt Date: 20111216
  Transmission Date: 20120403
  Serious: Yes (Hospitalization)
  Sender: FDA-Public Use
  Company Number: US-ELI_LILLY_AND_COMPANY-US201104002213

PATIENT
  Sex: Female

DRUGS (17)
  1. FORTEO [Suspect]
     Dosage: 20 UG, QD
     Route: 058
  2. VITAMIN B COMPLEX WITH VITAMIN C [Concomitant]
  3. VITAMIN D [Concomitant]
  4. VITAMIN B-12 [Concomitant]
  5. FORTEO [Suspect]
     Dosage: 20 UG, QD
     Route: 058
  6. FERROUS GLUCONATE [Concomitant]
  7. PRILOSEC [Concomitant]
  8. CALCIUM ACETATE [Concomitant]
  9. ASPIRIN [Concomitant]
  10. FORTEO [Suspect]
     Dosage: 20 UG, QD
     Route: 058
  11. FOLIC ACID [Concomitant]
  12. FISH OIL [Concomitant]
  13. FORTEO [Suspect]
     Indication: OSTEOPOROSIS
     Dosage: 20 UG, QD
     Route: 058
     Dates: start: 20100101
  14. GLUCOSAMINE [Concomitant]
  15. FEXOFENADINE [Concomitant]
  16. ETODOLAC [Concomitant]
  17. MULTI-VITAMIN [Concomitant]

REACTIONS (12)
  - CATARACT [None]
  - HYPERKERATOSIS [None]
  - GAIT DISTURBANCE [None]
  - HIP FRACTURE [None]
  - INFECTION [None]
  - LOCALISED INFECTION [None]
  - ANAEMIA [None]
  - ARTHRALGIA [None]
  - FALL [None]
  - INFECTED BUNION [None]
  - LIMB INJURY [None]
  - CELLULITIS [None]
